FAERS Safety Report 9000216 (Version 1)
Quarter: 2013Q1

REPORT INFORMATION
  Report Type: Spontaneous
  Country: US (occurrence: US)
  Receive Date: 20130102
  Receipt Date: 20130102
  Transmission Date: 20140127
  Serious: Yes (Other)
  Sender: FDA-Public Use
  Company Number: US-JNJFOC-20121212231

PATIENT
  Sex: Female
  Weight: 106.6 kg

DRUGS (7)
  1. STELARA [Suspect]
     Indication: PSORIATIC ARTHROPATHY
     Route: 058
     Dates: start: 201112, end: 201208
  2. SYNTHROID [Concomitant]
     Indication: THYROID DISORDER
     Route: 065
  3. VERAPAMIL [Concomitant]
     Indication: PALPITATIONS
     Route: 065
  4. QUINAPRIL [Concomitant]
     Indication: BLOOD PRESSURE
     Route: 065
  5. METFORMIN [Concomitant]
     Indication: DIABETES MELLITUS
     Route: 065
  6. NOVOLOG [Concomitant]
     Indication: DIABETES MELLITUS
     Route: 065
  7. LEVEMIR [Concomitant]
     Indication: DIABETES MELLITUS
     Route: 065

REACTIONS (3)
  - Atrial fibrillation [Not Recovered/Not Resolved]
  - Psoriasis [Not Recovered/Not Resolved]
  - Off label use [Unknown]
